FAERS Safety Report 7911431-7 (Version None)
Quarter: 2011Q4

REPORT INFORMATION
  Report Type: 
  Country: None (occurrence: None)
  Receive Date: 20111109
  Receipt Date: 20110810
  Transmission Date: 20120403
  Serious: Yes (Other)
  Sender: FDA-Public Use
  Company Number: AUR-APL-2011-04361

PATIENT
  Age: 63 Year
  Sex: Male
  Weight: 75.74 kg

DRUGS (5)
  1. PHENYTOIN [Suspect]
     Indication: PRODUCT USED FOR UNKNOWN INDICATION
  2. DEPAKOTE [Suspect]
     Indication: GRAND MAL CONVULSION
     Dosage: SEE IMAGE
     Route: 048
     Dates: end: 20110101
  3. DEPAKOTE [Suspect]
     Indication: GRAND MAL CONVULSION
     Dosage: SEE IMAGE
     Route: 048
     Dates: start: 20050101, end: 20110101
  4. DIVALPROEX SODIUM [Suspect]
     Indication: PRODUCT USED FOR UNKNOWN INDICATION
     Dosage: 1500 MG (500 MG,3 IN 1 D)
  5. DILANTIN [Suspect]
     Indication: GRAND MAL CONVULSION
     Dosage: 400 MG (200 MG,2 IN 1 D),ORAL
     Route: 048
     Dates: start: 19890901

REACTIONS (7)
  - SPEECH DISORDER [None]
  - BLOOD GLUCOSE DECREASED [None]
  - INCOHERENT [None]
  - ANTICONVULSANT DRUG LEVEL INCREASED [None]
  - DRUG INTERACTION [None]
  - CONVULSION [None]
  - DIZZINESS [None]
